FAERS Safety Report 10861828 (Version 1)
Quarter: 2015Q1

REPORT INFORMATION
  Report Type: Spontaneous
  Country: US (occurrence: None)
  Receive Date: 20150219
  Receipt Date: 20150219
  Transmission Date: 20150721
  Serious: Yes (Death)
  Sender: FDA-Public Use
  Company Number: NSR_01901_2015

PATIENT
  Age: 49 Year
  Sex: Male

DRUGS (4)
  1. TRAMADOL [Suspect]
     Active Substance: TRAMADOL
     Indication: PRODUCT USED FOR UNKNOWN INDICATION
     Dosage: DF
  2. CARBON MONOXIDE [Suspect]
     Active Substance: CARBON MONOXIDE
  3. COCAINE [Suspect]
     Active Substance: COCAINE
  4. SMOKE [Suspect]
     Active Substance: UNSPECIFIED INGREDIENT
     Indication: PRODUCT USED FOR UNKNOWN INDICATION
     Dosage: DF, RESPIRATORY
     Route: 055

REACTIONS (2)
  - Poisoning deliberate [None]
  - Victim of crime [None]

NARRATIVE: CASE EVENT DATE: 2013
